FAERS Safety Report 8139796-4 (Version None)
Quarter: 2012Q1

REPORT INFORMATION
  Report Type: 
  Country: None (occurrence: None)
  Receive Date: 20120215
  Receipt Date: 20120208
  Transmission Date: 20120608
  Serious: Yes (Hospitalization)
  Sender: FDA-Public Use
  Company Number: US-MILLENNIUM PHARMACEUTICALS, INC.-2012-00286

PATIENT
  Sex: Female
  Weight: 67.574 kg

DRUGS (5)
  1. SEROQUEL [Concomitant]
     Indication: PRODUCT USED FOR UNKNOWN INDICATION
  2. RITUXIMAB [Suspect]
     Indication: MANTLE CELL LYMPHOMA
     Dosage: 683 MG, CYCLIC
     Route: 042
     Dates: start: 20110926, end: 20111219
  3. ARICEPT [Concomitant]
     Indication: PRODUCT USED FOR UNKNOWN INDICATION
  4. VELCADE [Suspect]
     Indication: MANTLE CELL LYMPHOMA
     Dosage: 1.27 MG, CYCLIC
     Route: 042
     Dates: start: 20110926, end: 20111227
  5. LENALIDOMIDE [Suspect]
     Indication: MANTLE CELL LYMPHOMA
     Dosage: 5 MG, CYCLIC
     Route: 048
     Dates: start: 20110926, end: 20111117

REACTIONS (1)
  - ENTEROCOLITIS INFECTIOUS [None]
